FAERS Safety Report 9524327 (Version 1)
Quarter: 2013Q1

REPORT INFORMATION
  Report Type: Spontaneous
  Country: US (occurrence: None)
  Receive Date: 20130305
  Receipt Date: 20130305
  Transmission Date: 20140127
  Serious: Yes (Other)
  Sender: FDA-Public Use
  Company Number: 163-21880-12022098

PATIENT
  Age: 81 Year
  Sex: Female

DRUGS (1)
  1. REVLIMID [Suspect]
     Indication: PLASMA CELL MYELOMA
     Dosage: 10 MG, DAILY FOR 21 DAYS ON, 7 DAYS OFF, PO
     Route: 048
     Dates: start: 20111120

REACTIONS (13)
  - Anaemia [None]
  - Plasma cell myeloma [None]
  - Eructation [None]
  - Weight decreased [None]
  - Muscle spasms [None]
  - Nausea [None]
  - Hypoaesthesia [None]
  - Fatigue [None]
  - Dysgeusia [None]
  - Nasopharyngitis [None]
  - Decreased appetite [None]
  - Constipation [None]
  - Diarrhoea [None]
